FAERS Safety Report 21308192 (Version 1)
Quarter: 2022Q3

REPORT INFORMATION
  Report Type: Spontaneous
  Country: US (occurrence: None)
  Receive Date: 20220907
  Receipt Date: 20220907
  Transmission Date: 20221027
  Serious: Yes (Other)
  Sender: FDA-Public Use
  Company Number: None

PATIENT
  Age: 41 Year
  Sex: Female
  Weight: 63 kg

DRUGS (8)
  1. CIPROFLOXACIN [Suspect]
     Active Substance: CIPROFLOXACIN
     Indication: Pyelonephritis acute
     Dosage: OTHER QUANTITY : 20 TABLET(S);?FREQUENCY : TWICE A DAY;?
     Route: 048
     Dates: start: 20220829, end: 20220907
  2. CIPROFLOXACIN [Concomitant]
     Active Substance: CIPROFLOXACIN
  3. HYDROCODONE [Concomitant]
     Active Substance: HYDROCODONE
  4. Adderal XL [Concomitant]
  5. IBUPROFEN [Concomitant]
     Active Substance: IBUPROFEN
  6. TYLENOL [Concomitant]
     Active Substance: ACETAMINOPHEN
  7. Womens daily miltivitamin [Concomitant]
  8. MELATONIN [Concomitant]
     Active Substance: MELATONIN

REACTIONS (12)
  - Arthralgia [None]
  - Pain in extremity [None]
  - Pain in extremity [None]
  - Musculoskeletal stiffness [None]
  - Musculoskeletal pain [None]
  - Insomnia [None]
  - Discomfort [None]
  - Fatigue [None]
  - Abdominal pain upper [None]
  - Drug interaction [None]
  - Headache [None]
  - Haemorrhoids [None]

NARRATIVE: CASE EVENT DATE: 20220829
